FAERS Safety Report 7431976-6 (Version None)
Quarter: 2011Q1

REPORT INFORMATION
  Report Type: 
  Country: None (occurrence: None)
  Receive Date: 20110302
  Receipt Date: 20101022
  Transmission Date: 20110831
  Serious: No
  Sender: FDA-Public Use
  Company Number: 020928

PATIENT
  Sex: Male
  Weight: 65.8 kg

DRUGS (4)
  1. ASCORBIC ACID [Concomitant]
  2. ASACOL [Concomitant]
  3. CERTOLIZUMAB PEGOL [Suspect]
     Indication: CROHN'S DISEASE
     Dosage: 200 MG 1X/2 WEEKS SUBCUTANEOUS
     Route: 058
     Dates: start: 20100501
  4. M.V.I. [Concomitant]

REACTIONS (2)
  - SKIN SWELLING [None]
  - PRURITUS [None]
